FAERS Safety Report 20316422 (Version 2)
Quarter: 2022Q1

REPORT INFORMATION
  Report Type: Spontaneous
  Country: SI (occurrence: SI)
  Receive Date: 20220110
  Receipt Date: 20220307
  Transmission Date: 20220423
  Serious: Yes (Death, Disabling, Other)
  Sender: FDA-Public Use
  Company Number: None

PATIENT
  Age: 74 Year
  Sex: Female
  Weight: 81 kg

DRUGS (7)
  1. MVASI [Suspect]
     Active Substance: BEVACIZUMAB-AWWB
     Indication: Colon cancer metastatic
     Dosage: 600 MILLIGRAM
     Route: 042
     Dates: start: 20210913, end: 20211115
  2. CAPECITABINE [Suspect]
     Active Substance: CAPECITABINE
     Indication: Colon cancer metastatic
     Dosage: 1500 MG/12 H 14 DAYS  IN 21-DAY CYCLES
     Route: 048
     Dates: start: 20210913, end: 20211129
  3. IRINOTECAN [Suspect]
     Active Substance: IRINOTECAN
     Indication: Colon cancer metastatic
     Dosage: 350 MILLIGRAM
     Route: 042
     Dates: start: 20210913, end: 20211115
  4. ULTOP [OMEPRAZOLE] [Concomitant]
     Dosage: 20 MILLIGRAM
     Route: 048
  5. LOPACUT [Concomitant]
     Dosage: 2 MILLIGRAM
     Route: 048
  6. REGLAN [Concomitant]
     Active Substance: METOCLOPRAMIDE HYDROCHLORIDE
     Dosage: 10 MILLIGRAM
     Route: 048
  7. BROMAZEPAM [Concomitant]
     Active Substance: BROMAZEPAM
     Dosage: 3 MILLIGRAM
     Route: 048

REACTIONS (4)
  - Cardiac arrest [Fatal]
  - Pulmonary embolism [Fatal]
  - Hemiparesis [Recovered/Resolved with Sequelae]
  - Cerebrovascular accident [Recovered/Resolved with Sequelae]

NARRATIVE: CASE EVENT DATE: 20211121
